FAERS Safety Report 17409277 (Version 2)
Quarter: 2020Q1

REPORT INFORMATION
  Report Type: Report from Study
  Country: US (occurrence: US)
  Receive Date: 20200212
  Receipt Date: 20200218
  Transmission Date: 20200409
  Serious: Yes (Death)
  Sender: FDA-Public Use
  Company Number: US-IPSEN BIOPHARMACEUTICALS, INC.-2020-02781

PATIENT
  Age: 65 Year
  Sex: Female

DRUGS (21)
  1. SOMATULINE DEPOT [Suspect]
     Active Substance: LANREOTIDE ACETATE
     Indication: ACROMEGALY
     Route: 058
     Dates: start: 20160330, end: 20200113
  2. NOVOLIN N [Concomitant]
     Active Substance: INSULIN HUMAN
  3. LOPRESSOR [Concomitant]
     Active Substance: METOPROLOL TARTRATE
  4. LEVOTHYROXINE. [Concomitant]
     Active Substance: LEVOTHYROXINE
  5. POTASSIUM [Concomitant]
     Active Substance: POTASSIUM
  6. ISOSORBIDE MONONITRATE. [Concomitant]
     Active Substance: ISOSORBIDE MONONITRATE
  7. VITAMIN D [Concomitant]
     Active Substance: VITAMIN D NOS
  8. ASPIRIN. [Concomitant]
     Active Substance: ASPIRIN
  9. FENOFIBRATE. [Concomitant]
     Active Substance: FENOFIBRATE
  10. AMITRYPTILINE [Concomitant]
     Active Substance: AMITRIPTYLINE
  11. SOMATULINE DEPOT [Suspect]
     Active Substance: LANREOTIDE ACETATE
     Route: 058
     Dates: start: 20200113
  12. LASIX [Concomitant]
     Active Substance: FUROSEMIDE
  13. ZOLOFT [Concomitant]
     Active Substance: SERTRALINE HYDROCHLORIDE
  14. NIFEDIPINE. [Concomitant]
     Active Substance: NIFEDIPINE
  15. PLAVIX [Concomitant]
     Active Substance: CLOPIDOGREL BISULFATE
  16. HYDROCORTISONE. [Concomitant]
     Active Substance: HYDROCORTISONE
  17. LISINOPRIL. [Concomitant]
     Active Substance: LISINOPRIL
  18. ATORVASTATIN [Concomitant]
     Active Substance: ATORVASTATIN
  19. HYDRALAZINE [Concomitant]
     Active Substance: HYDRALAZINE HYDROCHLORIDE
  20. GLUCOPHAGE [Concomitant]
     Active Substance: METFORMIN HYDROCHLORIDE
  21. INVOKANA [Concomitant]
     Active Substance: CANAGLIFLOZIN

REACTIONS (1)
  - Death [Fatal]

NARRATIVE: CASE EVENT DATE: 20200131
